FAERS Safety Report 5765760-6 (Version None)
Quarter: 2008Q2

REPORT INFORMATION
  Report Type: 
  Country: None (occurrence: None)
  Receive Date: 20080606
  Receipt Date: 20080523
  Transmission Date: 20081010
  Serious: Yes (Other)
  Sender: FDA-Public Use
  Company Number: DSA_62136_2008

PATIENT
  Sex: Male

DRUGS (1)
  1. DIASTAT [Suspect]
     Indication: FEBRILE CONVULSION
     Dosage: 2.5 MG PRN RECTAL
     Route: 054
     Dates: start: 20080501, end: 20080501

REACTIONS (4)
  - CONVULSION [None]
  - DRUG ADMINISTRATION ERROR [None]
  - DRUG DISPENSING ERROR [None]
  - PHARMACEUTICAL PRODUCT COMPLAINT [None]
